FAERS Safety Report 8760067 (Version 1)
Quarter: 2012Q4

REPORT INFORMATION
  Report Type: Spontaneous
  Country: US (occurrence: None)
  Receive Date: 20120829
  Receipt Date: 20120829
  Transmission Date: 20130627
  Serious: Yes (Other)
  Sender: FDA-Public Use
  Company Number: None

PATIENT
  Age: 24 Year
  Sex: Male
  Weight: 63.5 kg

DRUGS (1)
  1. PROPECIA [Suspect]

REACTIONS (13)
  - Anxiety [None]
  - General physical health deterioration [None]
  - Nervous system disorder [None]
  - Libido decreased [None]
  - Anhedonia [None]
  - Memory impairment [None]
  - Sensory disturbance [None]
  - Urogenital disorder [None]
  - Asthenia [None]
  - Muscle disorder [None]
  - Alopecia [None]
  - Appetite disorder [None]
  - Gastrointestinal disorder [None]
